FAERS Safety Report 9056960 (Version 1)
Quarter: 2013Q1

REPORT INFORMATION
  Report Type: Report from Study
  Country: US (occurrence: US)
  Receive Date: 20130131
  Receipt Date: 20130131
  Transmission Date: 20140127
  Serious: No
  Sender: FDA-Public Use
  Company Number: US-ABBOTT-12P-163-0989490-00

PATIENT
  Age: 32 Year
  Sex: Female

DRUGS (5)
  1. HUMIRA [Suspect]
     Indication: PSORIASIS
  2. BIRTH CONTROL PILLS [Concomitant]
     Indication: PRODUCT USED FOR UNKNOWN INDICATION
     Dosage: EVERY DAY
  3. METFORMIN HCL [Concomitant]
     Indication: DIABETES MELLITUS
  4. HYDROXYZINE HCL [Concomitant]
     Indication: PRURITUS
     Dosage: 1-2 TABS EVERY NIGHT
  5. MINOCYCLINE [Concomitant]
     Indication: BLOOD PRESSURE

REACTIONS (3)
  - Wrong technique in drug usage process [Unknown]
  - Drug dose omission [Unknown]
  - Wrong technique in drug usage process [Unknown]
